FAERS Safety Report 6406694-3 (Version None)
Quarter: 2009Q4

REPORT INFORMATION
  Report Type: 
  Country: None (occurrence: None)
  Receive Date: 20091020
  Receipt Date: 20091009
  Transmission Date: 20100525
  Serious: Yes (Other)
  Sender: FDA-Public Use
  Company Number: GB-RANBAXY-2009RR-28550

PATIENT
  Sex: Male

DRUGS (1)
  1. PARACETAMOL [Suspect]
     Dosage: 1 DF, UNK
     Route: 048

REACTIONS (5)
  - ANGIOEDEMA [None]
  - EYELID OEDEMA [None]
  - HYPERSENSITIVITY [None]
  - MALAISE [None]
  - SWOLLEN TONGUE [None]
